FAERS Safety Report 10414104 (Version 2)
Quarter: 2014Q3

REPORT INFORMATION
  Report Type: Spontaneous
  Country: US (occurrence: US)
  Receive Date: 20140827
  Receipt Date: 20140827
  Transmission Date: 20150326
  Serious: No
  Sender: FDA-Public Use
  Company Number: US-ASTRAZENECA-2013SE68249

PATIENT
  Age: 78 Year
  Sex: Male

DRUGS (5)
  1. BLOOD PRESSUE PILL [Concomitant]
  2. SYMBICORT [Suspect]
     Active Substance: BUDESONIDE\FORMOTEROL FUMARATE DIHYDRATE
     Indication: ASTHMA
     Dosage: 80/4.5 MCG ONE PUFF TWICE A DAY
     Route: 055
  3. SINGULAIR [Concomitant]
     Active Substance: MONTELUKAST SODIUM
     Dosage: GENERIC
  4. SYMBICORT [Suspect]
     Active Substance: BUDESONIDE\FORMOTEROL FUMARATE DIHYDRATE
     Indication: ASTHMA
     Dosage: 80/4.5 MCG TWO PUFFS TWICE A DAY
     Route: 055
  5. EYE DROPS [Concomitant]
     Active Substance: TETRAHYDROZOLINE HYDROCHLORIDE

REACTIONS (10)
  - Ear disorder [Unknown]
  - Somnolence [Unknown]
  - Feeling abnormal [Unknown]
  - Throat tightness [Unknown]
  - Productive cough [Unknown]
  - Off label use [Unknown]
  - Sneezing [Unknown]
  - Lacrimation increased [Unknown]
  - Rhinorrhoea [Unknown]
  - Eye disorder [Unknown]
